FAERS Safety Report 18292275 (Version 2)
Quarter: 2020Q4

REPORT INFORMATION
  Report Type: Spontaneous
  Country: FR (occurrence: FR)
  Receive Date: 20200922
  Receipt Date: 20201024
  Transmission Date: 20210113
  Serious: Yes (Death)
  Sender: FDA-Public Use
  Company Number: FR-ROCHE-2681146

PATIENT
  Sex: Male

DRUGS (11)
  1. MOVENTIG [Concomitant]
     Active Substance: NALOXEGOL OXALATE
  2. ACTISKENAN [Concomitant]
     Active Substance: MORPHINE SULFATE
     Dosage: 1 TABLET 6 X DAY IF PAIN
  3. BURINEX [Concomitant]
     Active Substance: BUMETANIDE
  4. ELIQUIS [Concomitant]
     Active Substance: APIXABAN
  5. ALECENSA [Suspect]
     Active Substance: ALECTINIB HYDROCHLORIDE
     Indication: NON-SMALL CELL LUNG CANCER
     Route: 048
     Dates: start: 20200803
  6. NOVOMIX 30 [Concomitant]
     Active Substance: INSULIN ASPART
  7. ALPRAZOLAM. [Concomitant]
     Active Substance: ALPRAZOLAM
     Dosage: 1 TABLET IF REQUIRED
  8. PARACETAMOL [Concomitant]
     Active Substance: ACETAMINOPHEN
     Dosage: 3 TIMES/DAY IF REQUIRED (IF SIGNIFICANT PAIN)
  9. METOCLOPRAMIDE. [Concomitant]
     Active Substance: METOCLOPRAMIDE
     Dosage: IF NAUSEA/VOMITING
  10. SKENAN [Concomitant]
     Active Substance: MORPHINE SULFATE
     Dosage: 40 MG MORNING AND 40 MG EVENING
  11. RAMIPRIL. [Concomitant]
     Active Substance: RAMIPRIL

REACTIONS (1)
  - Haemorrhage [Fatal]
